FAERS Safety Report 6305654-0 (Version None)
Quarter: 2009Q3

REPORT INFORMATION
  Report Type: 
  Country: None (occurrence: None)
  Receive Date: 20090807
  Receipt Date: 20090724
  Transmission Date: 20100115
  Serious: Yes (Life-Threatening, Other)
  Sender: FDA-Public Use
  Company Number: ADE2009-0750

PATIENT
  Age: 38 Year

DRUGS (1)
  1. AMOXICILLIN [Suspect]
     Indication: NASOPHARYNGITIS

REACTIONS (2)
  - NEUTROPENIA [None]
  - PROCTITIS [None]
